FAERS Safety Report 10833711 (Version 5)
Quarter: 2015Q2

REPORT INFORMATION
  Report Type: Spontaneous
  Country: IT (occurrence: IT)
  Receive Date: 20150219
  Receipt Date: 20150624
  Transmission Date: 20150821
  Serious: Yes (Death, Hospitalization, Other)
  Sender: FDA-Public Use
  Company Number: IT-MYLANLABS-2015M1001754

PATIENT

DRUGS (22)
  1. XELODA [Suspect]
     Active Substance: CAPECITABINE
     Indication: BREAST CANCER
     Dosage: 1000 MG, QD
  2. SOMATOSTATINE [Suspect]
     Active Substance: SOMATOSTATIN
     Indication: PRODUCT USED FOR UNKNOWN INDICATION
     Dosage: 4 MG, QD
  3. ENDOXAN                            /00021101/ [Concomitant]
     Active Substance: CYCLOPHOSPHAMIDE
     Indication: PRODUCT USED FOR UNKNOWN INDICATION
     Dosage: 50MG 50CPR
     Dates: start: 20141212
  4. CAPECITABINA MYLAN [Suspect]
     Active Substance: CAPECITABINE
     Indication: METASTASES TO LUNG
     Dosage: 5 UNK, QD
     Route: 048
     Dates: start: 201401
  5. MELATONINE [Suspect]
     Active Substance: MELATONIN
     Indication: PRODUCT USED FOR UNKNOWN INDICATION
     Dosage: UNK
  6. CALCIUM SANDOZ                     /00060701/ [Concomitant]
     Indication: PRODUCT USED FOR UNKNOWN INDICATION
     Dosage: 1000MG 30BS
     Dates: start: 20141121
  7. ENANTONE LP [Suspect]
     Active Substance: LEUPROLIDE ACETATE
     Indication: PRODUCT USED FOR UNKNOWN INDICATION
     Dosage: UNK
  8. FEMARA [Suspect]
     Active Substance: LETROZOLE
     Indication: PRODUCT USED FOR UNKNOWN INDICATION
     Dosage: UNK
  9. SODIUM CHLORIDE. [Concomitant]
     Active Substance: SODIUM CHLORIDE
     Indication: PRODUCT USED FOR UNKNOWN INDICATION
     Dosage: 250ML 1FL
     Route: 042
     Dates: start: 20141210
  10. CAPECITABINA MYLAN [Suspect]
     Active Substance: CAPECITABINE
     Indication: BREAST CANCER
     Dosage: 2 DF, QD
     Route: 048
     Dates: start: 201401
  11. XELODA [Suspect]
     Active Substance: CAPECITABINE
     Dosage: 2500 MG, QD
     Dates: start: 20141212, end: 20150105
  12. SANDOSTATINE                       /00821001/ [Suspect]
     Active Substance: OCTREOTIDE ACETATE
     Indication: PRODUCT USED FOR UNKNOWN INDICATION
     Dosage: UNK, Q21D
  13. ARTEMISIA [Suspect]
     Active Substance: ARTEMISIA ABSINTHIUM POLLEN
     Indication: PRODUCT USED FOR UNKNOWN INDICATION
     Dosage: UNK
  14. ONCO CARBIDE [Concomitant]
     Active Substance: HYDROXYUREA
     Indication: PRODUCT USED FOR UNKNOWN INDICATION
     Dosage: 1000 MG, QD
  15. VINORELBINE [Suspect]
     Active Substance: VINORELBINE\VINORELBINE TARTRATE
     Indication: PRODUCT USED FOR UNKNOWN INDICATION
     Route: 048
  16. ONCO CARBIDE [Concomitant]
     Active Substance: HYDROXYUREA
     Dosage: 500 MG, 20 CPS
     Dates: start: 20141215
  17. EXEMESTANE. [Concomitant]
     Active Substance: EXEMESTANE
     Indication: PRODUCT USED FOR UNKNOWN INDICATION
     Dosage: 25MG 30CPR RIV
     Dates: start: 20141222
  18. CAPECITABINA MYLAN [Suspect]
     Active Substance: CAPECITABINE
     Dosage: 3 UNK, QD
     Route: 048
     Dates: start: 20141223, end: 20150104
  19. CALCIUM SANDOZ                     /00060701/ [Concomitant]
     Dosage: 1000MG 30BS
     Dates: start: 20150122
  20. DOSTINEX [Concomitant]
     Active Substance: CABERGOLINE
     Indication: PRODUCT USED FOR UNKNOWN INDICATION
     Dosage: 0.5MG * 8 CPR
     Dates: start: 20150122
  21. CAPECITABINA MYLAN [Suspect]
     Active Substance: CAPECITABINE
     Dosage: 500 MG, CYCLE
     Route: 048
     Dates: start: 20140101, end: 20150104
  22. SODIUM CHLORIDE. [Concomitant]
     Active Substance: SODIUM CHLORIDE
     Dosage: 250ML 1FL
     Route: 042
     Dates: start: 20141212

REACTIONS (5)
  - Memory impairment [Unknown]
  - Skin exfoliation [Not Recovered/Not Resolved]
  - Aphasia [Not Recovered/Not Resolved]
  - Condition aggravated [Fatal]
  - Skin ulcer [Not Recovered/Not Resolved]

NARRATIVE: CASE EVENT DATE: 20141201
